FAERS Safety Report 5484567-0 (Version None)
Quarter: 2007Q4

REPORT INFORMATION
  Report Type: 
  Country: None (occurrence: None)
  Receive Date: 20071012
  Receipt Date: 20071001
  Transmission Date: 20080405
  Serious: Yes (Other)
  Sender: FDA-Public Use
  Company Number: US-PFIZER INC-2007082310

PATIENT
  Sex: Female

DRUGS (2)
  1. PHENYTOIN [Suspect]
  2. DILANTIN [Suspect]

REACTIONS (1)
  - CONVULSION [None]
